FAERS Safety Report 16642992 (Version 1)
Quarter: 2019Q3

REPORT INFORMATION
  Report Type: Spontaneous
  Country: US (occurrence: US)
  Receive Date: 20190729
  Receipt Date: 20190729
  Transmission Date: 20191004
  Serious: Yes (Other)
  Sender: FDA-Public Use
  Company Number: US-AVADEL LEGACY PHARMACEUTICALS, LLC-2019AVA00076

PATIENT

DRUGS (2)
  1. VAZCULEP [Suspect]
     Active Substance: PHENYLEPHRINE HYDROCHLORIDE
     Indication: PROCEDURAL HYPOTENSION
     Dosage: 450 ?G, ONCE
     Route: 042
     Dates: start: 20190304, end: 20190304
  2. VAZCULEP [Suspect]
     Active Substance: PHENYLEPHRINE HYDROCHLORIDE
     Dosage: 1000 ?G, ONCE
     Route: 042
     Dates: start: 20190304, end: 20190304

REACTIONS (3)
  - Product preparation issue [Recovered/Resolved]
  - Product administration error [Recovered/Resolved]
  - Drug ineffective [Recovered/Resolved]

NARRATIVE: CASE EVENT DATE: 20190227
